FAERS Safety Report 9153855 (Version 1)
Quarter: 2013Q1

REPORT INFORMATION
  Report Type: Spontaneous
  Country: US (occurrence: None)
  Receive Date: 20130308
  Receipt Date: 20130308
  Transmission Date: 20140127
  Serious: Yes (Other)
  Sender: FDA-Public Use
  Company Number: None

PATIENT
  Age: 46 Year
  Sex: Male
  Weight: 84.8 kg

DRUGS (19)
  1. OFATUMUMAB [Suspect]
     Indication: NON-HODGKIN^S LYMPHOMA REFRACTORY
     Route: 042
     Dates: start: 20120901, end: 20120927
  2. ACYCLOVIR [Concomitant]
  3. FLUCONAZOLE [Concomitant]
  4. LANSOPRAZOLE [Concomitant]
  5. MULTIVITAMIN [Concomitant]
  6. METHYLPREDNISOLONE [Concomitant]
  7. URSODIOL [Concomitant]
  8. PREDNISONE [Concomitant]
  9. ZOLPIDEM(AMBIEN [Concomitant]
  10. DOCUSATE [Concomitant]
  11. PREDNISONE [Concomitant]
  12. POTASSIUM CHLORIDE [Concomitant]
  13. POTASSIUM CHLORIDE [Concomitant]
  14. ZOFRAN [Concomitant]
  15. PROCHLORPERAZINE [Concomitant]
  16. IVIG [Concomitant]
  17. ATROPINE/HYOSCYAMINE/PR/SCOPOLAMINE [Concomitant]
  18. HYDROCORTISONE TOPICAL [Concomitant]
  19. MAGNESIUM [Concomitant]

REACTIONS (4)
  - Abdominal pain [None]
  - Rash [None]
  - Graft versus host disease [None]
  - Hepatic steatosis [None]
